FAERS Safety Report 18585628 (Version 1)
Quarter: 2020Q4

REPORT INFORMATION
  Report Type: Spontaneous
  Country: US (occurrence: US)
  Receive Date: 20201207
  Receipt Date: 20201207
  Transmission Date: 20210114
  Serious: No
  Sender: FDA-Public Use
  Company Number: US-GILEAD-2020-0506721

PATIENT
  Sex: Female

DRUGS (17)
  1. ENZYME [Concomitant]
     Active Substance: UNSPECIFIED INGREDIENT
  2. VITAMIN C [Concomitant]
     Active Substance: ASCORBIC ACID
  3. SOFOSBUVIR;VELPATASVIR [Suspect]
     Active Substance: SOFOSBUVIR\VELPATASVIR
     Indication: CHRONIC HEPATITIS C
     Dosage: 1 DOSAGE FORM, QD
     Route: 048
  4. EYE VITES [Concomitant]
  5. PROBIOTICS NOS [Concomitant]
     Active Substance: PROBIOTICS NOS
  6. ECHINACEA HERB [ECHINACEA SPP.] [Concomitant]
  7. ESTROGEL [Concomitant]
     Active Substance: ESTRADIOL
  8. SILVER NITRATE. [Concomitant]
     Active Substance: SILVER NITRATE
  9. NAILS, HAIR + SKIN [Concomitant]
  10. COENZYME Q10 [Concomitant]
     Active Substance: DIETARY SUPPLEMENT\UBIDECARENONE
  11. FISH OIL [Concomitant]
     Active Substance: FISH OIL
  12. B12-EHRL [Concomitant]
  13. LICORICE [GLYCYRRHIZA GLABRA] [Concomitant]
     Active Substance: GLYCYRRHIZA GLABRA\HERBALS
  14. LYSINE [Concomitant]
     Active Substance: LYSINE
  15. CALCIUM MAGNESIUM PLUS BORON [Concomitant]
  16. PAPAYA. [Concomitant]
     Active Substance: PAPAYA
  17. VITAMIN D3 [Concomitant]
     Active Substance: CHOLECALCIFEROL

REACTIONS (2)
  - Tooth infection [Unknown]
  - Pyrexia [Not Recovered/Not Resolved]
